FAERS Safety Report 5675613-X (Version None)
Quarter: 2008Q1

REPORT INFORMATION
  Report Type: 
  Country: None (occurrence: None)
  Receive Date: 20080321
  Receipt Date: 20080313
  Transmission Date: 20080703
  Serious: Yes (Other)
  Sender: FDA-Public Use
  Company Number: US-JNJFOC-20080303860

PATIENT
  Sex: Female
  Weight: 38.1 kg

DRUGS (6)
  1. TOPAMAX [Suspect]
     Indication: MIGRAINE
     Route: 048
  2. DEPAKOTE [Concomitant]
     Route: 048
  3. DEPAKOTE [Concomitant]
     Indication: COMPLEX PARTIAL SEIZURES
     Route: 048
  4. METHOTREXATE [Concomitant]
     Indication: ARTHRITIS
     Route: 048
  5. ZANTAC [Concomitant]
     Indication: GASTRIC DISORDER
     Route: 048
  6. FOLIC ACID [Concomitant]
     Indication: NUTRITIONAL SUPPORT
     Route: 048

REACTIONS (6)
  - AMMONIA ABNORMAL [None]
  - ANTICONVULSANT DRUG LEVEL INCREASED [None]
  - DYSPNOEA [None]
  - HEART RATE INCREASED [None]
  - HYPOTENSION [None]
  - WEIGHT DECREASED [None]
